FAERS Safety Report 9661252 (Version 1)
Quarter: 2013Q4

REPORT INFORMATION
  Report Type: Spontaneous
  Country: TR (occurrence: TR)
  Receive Date: 20131031
  Receipt Date: 20131031
  Transmission Date: 20140711
  Serious: Yes (Hospitalization)
  Sender: FDA-Public Use
  Company Number: TR-MYLANLABS-2013S1023787

PATIENT
  Age: 36 Year
  Sex: Female

DRUGS (4)
  1. BUPROPION [Suspect]
     Indication: OVERDOSE
     Dosage: DF=300MG; TOTAL=9G
     Route: 048
  2. BUPROPION [Suspect]
     Indication: SMOKING CESSATION THERAPY
     Dosage: DF=300MG; TOTAL=9G
     Route: 048
  3. BUPROPION [Suspect]
     Indication: OVERDOSE
     Route: 065
  4. BUPROPION [Suspect]
     Indication: SMOKING CESSATION THERAPY
     Route: 065

REACTIONS (5)
  - Status epilepticus [Recovered/Resolved]
  - Overdose [Recovered/Resolved]
  - Toxicity to various agents [Recovered/Resolved]
  - Headache [Recovered/Resolved]
  - Somnolence [Recovered/Resolved]
